FAERS Safety Report 10224432 (Version 1)
Quarter: 2014Q2

REPORT INFORMATION
  Report Type: Spontaneous
  Country: US (occurrence: US)
  Receive Date: 20140609
  Receipt Date: 20140609
  Transmission Date: 20141212
  Serious: No
  Sender: FDA-Public Use
  Company Number: US-PFIZER INC-2014157490

PATIENT
  Age: 59 Year
  Sex: Male
  Weight: 145.13 kg

DRUGS (4)
  1. LYRICA [Suspect]
     Indication: PAIN
     Dosage: UNK
  2. LYRICA [Suspect]
     Indication: NERVE INJURY
  3. LYRICA [Suspect]
     Indication: NEUROPATHY PERIPHERAL
  4. INSULIN [Concomitant]
     Indication: DIABETES MELLITUS
     Dosage: 100 IU, DAILY

REACTIONS (1)
  - Paraesthesia [Unknown]
